FAERS Safety Report 8122033-4 (Version None)
Quarter: 2012Q1

REPORT INFORMATION
  Report Type: 
  Country: None (occurrence: None)
  Receive Date: 20120208
  Receipt Date: 20120131
  Transmission Date: 20120608
  Serious: Yes (Other)
  Sender: FDA-Public Use
  Company Number: GB-TEVA-253768ISR

PATIENT
  Sex: Male

DRUGS (4)
  1. BISOPROLOL FUMARATE [Suspect]
     Dosage: 10 MILLIGRAM;
     Route: 048
  2. FLECAINIDE ACETATE [Suspect]
     Dosage: 110 MILLIGRAM;
     Route: 048
  3. SIMVASTATIN [Suspect]
     Route: 048
  4. RAMIPRIL [Suspect]
     Indication: HYPERTENSION
     Dosage: 5 MILLIGRAM;
     Route: 048
     Dates: start: 20100501, end: 20100101

REACTIONS (3)
  - ATRIAL FIBRILLATION [None]
  - PALPITATIONS [None]
  - DRUG INTERACTION [None]
